FAERS Safety Report 8830859 (Version 2)
Quarter: 2013Q1

REPORT INFORMATION
  Report Type: Spontaneous
  Country: FI (occurrence: FI)
  Receive Date: 20121008
  Receipt Date: 20130325
  Transmission Date: 20140127
  Serious: No
  Sender: FDA-Public Use
  Company Number: FI-SANOFI-AVENTIS-2012SA070791

PATIENT
  Age: 34 Year
  Sex: Female
  Weight: 83 kg

DRUGS (7)
  1. ARAVA [Suspect]
     Indication: RHEUMATOID ARTHRITIS
     Route: 048
     Dates: start: 20120417, end: 20120610
  2. QUESTRAN [Concomitant]
     Indication: DRUG DETOXIFICATION
     Route: 048
     Dates: start: 20120920, end: 20121001
  3. ARCOXIA [Concomitant]
     Indication: PAIN
     Route: 048
     Dates: end: 20120919
  4. CYMBALTA [Concomitant]
     Indication: MOOD ALTERED
     Route: 048
     Dates: end: 20120919
  5. SOLOMET [Concomitant]
     Indication: RHEUMATOID ARTHRITIS
  6. OXIKLORIN [Concomitant]
     Indication: RHEUMATOID ARTHRITIS
     Route: 048
     Dates: end: 20120919
  7. SALAZOPYRIN EN [Concomitant]
     Indication: RHEUMATOID ARTHRITIS
     Route: 048

REACTIONS (2)
  - Alopecia [Unknown]
  - Exposure during pregnancy [Unknown]
